FAERS Safety Report 7388316-0 (Version None)
Quarter: 2011Q2

REPORT INFORMATION
  Report Type: 
  Country: None (occurrence: None)
  Receive Date: 20110401
  Receipt Date: 20110330
  Transmission Date: 20111010
  Serious: Yes (Hospitalization)
  Sender: FDA-Public Use
  Company Number: US-ALEXION-A201100361

PATIENT
  Sex: Male

DRUGS (2)
  1. PREDNISONE [Suspect]
     Dosage: 10 MG, QD
  2. SOLIRIS [Suspect]
     Indication: PAROXYSMAL NOCTURNAL HAEMOGLOBINURIA
     Dosage: 600 MG, UNK
     Route: 042
     Dates: end: 20110103

REACTIONS (2)
  - HAEMATOCRIT DECREASED [None]
  - PNEUMONIA [None]
